FAERS Safety Report 9163775 (Version 2)
Quarter: 2013Q2

REPORT INFORMATION
  Report Type: Report from Study
  Country: US (occurrence: US)
  Receive Date: 20130314
  Receipt Date: 20130403
  Transmission Date: 20140414
  Serious: Yes (Hospitalization)
  Sender: FDA-Public Use
  Company Number: US-ABBOTT-13P-163-1062017-00

PATIENT
  Age: 60 Year
  Sex: Male

DRUGS (9)
  1. HUMIRA [Suspect]
     Indication: CROHN^S DISEASE
     Dates: start: 201210
  2. ASACOL [Concomitant]
     Indication: CROHN^S DISEASE
  3. PRILOSEC [Concomitant]
     Indication: GASTROOESOPHAGEAL REFLUX DISEASE
  4. JALYN [Concomitant]
     Indication: PROSTATOMEGALY
  5. REQUIP [Concomitant]
     Indication: PRODUCT USED FOR UNKNOWN INDICATION
  6. TOPAMAX [Concomitant]
     Indication: MIGRAINE
  7. EFFEXOR [Concomitant]
     Indication: DEPRESSION
  8. DIOVAN [Concomitant]
     Indication: BLOOD PRESSURE
  9. LUNESTA [Concomitant]
     Indication: INSOMNIA
     Dosage: 3 MG AT BEDTIME

REACTIONS (5)
  - Malaise [Unknown]
  - Functional gastrointestinal disorder [Unknown]
  - Feeling abnormal [Unknown]
  - Hypophagia [Unknown]
  - Abdominal discomfort [Unknown]
